FAERS Safety Report 13907421 (Version 1)
Quarter: 2017Q3

REPORT INFORMATION
  Report Type: Spontaneous
  Country: US (occurrence: US)
  Receive Date: 20170825
  Receipt Date: 20170825
  Transmission Date: 20171127
  Serious: No
  Sender: FDA-Public Use
  Company Number: US-ROCHE-1075711

PATIENT
  Age: 48 Year

DRUGS (3)
  1. NUTROPIN [Suspect]
     Active Substance: SOMATROPIN
     Indication: PRODUCT USED FOR UNKNOWN INDICATION
     Dosage: START DATE REPORTED AS 1 MONTH AGO
     Route: 058
  2. NUTROPIN [Suspect]
     Active Substance: SOMATROPIN
     Route: 058
     Dates: start: 201205
  3. ESTROGEN [Concomitant]
     Active Substance: ESTROGENS
     Indication: HORMONE REPLACEMENT THERAPY
     Route: 061

REACTIONS (4)
  - Arthralgia [Not Recovered/Not Resolved]
  - Crohn^s disease [Not Recovered/Not Resolved]
  - Injection site bruising [Recovered/Resolved]
  - Irritability [Not Recovered/Not Resolved]

NARRATIVE: CASE EVENT DATE: 20120501
